FAERS Safety Report 9264932 (Version 4)
Quarter: 2013Q3

REPORT INFORMATION
  Report Type: Report from Study
  Country: US (occurrence: US)
  Receive Date: 20130501
  Receipt Date: 20130718
  Transmission Date: 20140515
  Serious: Yes (Other)
  Sender: FDA-Public Use
  Company Number: US-ROCHE-1217169

PATIENT
  Age: 25 Year
  Sex: Female
  Weight: 56.75 kg

DRUGS (7)
  1. RIBAVIRIN [Suspect]
     Indication: HEPATITIS C
     Dosage: 400 MG AM, 600 MG PM
     Route: 048
     Dates: start: 20130311, end: 20130319
  2. RIBAVIRIN [Suspect]
     Dosage: 400 MG AM
     Route: 048
     Dates: start: 20130320, end: 20130320
  3. RITONAVIR [Suspect]
     Indication: HEPATITIS C
     Dosage: 150MG,100 MG,25 MG
     Route: 048
     Dates: start: 20130311, end: 20130320
  4. ABT-333 [Suspect]
     Indication: HEPATITIS C
     Route: 048
     Dates: start: 20130311, end: 20130319
  5. ABT-333 [Suspect]
     Route: 048
     Dates: start: 20130320, end: 20130320
  6. ZYRTEC [Concomitant]
     Dosage: AS REQUIRED
     Route: 048
     Dates: start: 201301
  7. IBUPROFEN [Concomitant]
     Indication: HEADACHE
     Dosage: AS REQUIRED
     Route: 048

REACTIONS (1)
  - Hepatitis acute [Recovered/Resolved]
